FAERS Safety Report 15027682 (Version 1)
Quarter: 2018Q2

REPORT INFORMATION
  Report Type: Spontaneous
  Country: US (occurrence: US)
  Receive Date: 20180619
  Receipt Date: 20180619
  Transmission Date: 20180711
  Serious: No
  Sender: FDA-Public Use
  Company Number: US-PFIZER INC-2018151999

PATIENT
  Age: 33 Year
  Sex: Female
  Weight: 77.1 kg

DRUGS (3)
  1. GENOTROPIN [Suspect]
     Active Substance: SOMATROPIN
     Dosage: ONCE A DAY NIGHTLY
     Dates: end: 201802
  2. GENOTROPIN [Suspect]
     Active Substance: SOMATROPIN
     Dosage: ONCE A DAY NIGHTLY
  3. GENOTROPIN [Suspect]
     Active Substance: SOMATROPIN
     Indication: GROWTH HORMONE DEFICIENCY
     Dosage: ONCE A DAY NIGHTLY
     Dates: start: 2008

REACTIONS (4)
  - Muscle mass [Not Recovered/Not Resolved]
  - Weight increased [Not Recovered/Not Resolved]
  - Loss of personal independence in daily activities [Not Recovered/Not Resolved]
  - Asthenia [Not Recovered/Not Resolved]
